FAERS Safety Report 10516066 (Version 3)
Quarter: 2014Q4

REPORT INFORMATION
  Report Type: Spontaneous
  Country: US (occurrence: US)
  Receive Date: 20141014
  Receipt Date: 20141107
  Transmission Date: 20150528
  Serious: No
  Sender: FDA-Public Use
  Company Number: US-TEVA-510459USA

PATIENT
  Age: 20 Year
  Sex: Male

DRUGS (13)
  1. VITAMIN D3 [Concomitant]
     Active Substance: CHOLECALCIFEROL
     Dosage: 7142.8571 IU (INTERNATIONAL UNIT) DAILY;
  2. ALBUTEROL. [Concomitant]
     Active Substance: ALBUTEROL
     Dosage: 2 PUFFS AS NEEDED
     Route: 055
  3. DEXAMETHASONE. [Concomitant]
     Active Substance: DEXAMETHASONE
     Dosage: 16 MILLIGRAM DAILY;
  4. ISONIAZID. [Concomitant]
     Active Substance: ISONIAZID
     Dosage: 300 MILLIGRAM DAILY;
  5. OLANZAPINE. [Concomitant]
     Active Substance: OLANZAPINE
     Dosage: DAILY
  6. MULTIVITAMIN [Concomitant]
     Active Substance: VITAMINS
     Dosage: DAILY
  7. PANTOPRAZOLE [Concomitant]
     Active Substance: PANTOPRAZOLE SODIUM
     Dosage: 40 MILLIGRAM DAILY;
  8. SYNRIBO [Suspect]
     Active Substance: OMACETAXINE MEPESUCCINATE
     Indication: CHRONIC MYELOID LEUKAEMIA
     Dosage: 14 DAYS FOR A 28 DAY CYCLE
     Route: 058
     Dates: start: 20140916, end: 20140928
  9. ACYCLOVIR. [Concomitant]
     Active Substance: ACYCLOVIR
     Dosage: 1200 MILLIGRAM DAILY;
  10. ALLOPURINOL. [Concomitant]
     Active Substance: ALLOPURINOL
     Dosage: 300 MILLIGRAM DAILY;
  11. SYNRIBO [Suspect]
     Active Substance: OMACETAXINE MEPESUCCINATE
     Route: 058
     Dates: start: 201410
  12. FOLIC ACID. [Concomitant]
     Active Substance: FOLIC ACID
     Dosage: 1 MILLIGRAM DAILY;
  13. URSODIOL. [Concomitant]
     Active Substance: URSODIOL
     Dosage: 900 MILLIGRAM DAILY;

REACTIONS (5)
  - Rash pruritic [Not Recovered/Not Resolved]
  - Rash erythematous [Not Recovered/Not Resolved]
  - Vomiting [Unknown]
  - Nausea [Unknown]
  - Myalgia [Unknown]

NARRATIVE: CASE EVENT DATE: 20140916
